FAERS Safety Report 5027568-9 (Version None)
Quarter: 2006Q2

REPORT INFORMATION
  Report Type: 
  Country: None (occurrence: None)
  Receive Date: 20060616
  Receipt Date: 20060411
  Transmission Date: 20061013
  Serious: Yes (Other)
  Sender: FDA-Public Use
  Company Number: FRWYE549511APR06

PATIENT
  Age: 59 Year
  Sex: Male

DRUGS (4)
  1. ENBREL [Suspect]
     Indication: RHEUMATOID ARTHRITIS
     Route: 058
     Dates: start: 20060216
  2. NOVATREX [Suspect]
     Indication: RHEUMATOID ARTHRITIS
     Dosage: 15 MG TOTAL WEEKLY
     Route: 048
     Dates: start: 20050805, end: 20060331
  3. NOVATREX [Suspect]
     Dosage: 7.5 MG TOTAL WEEKLY
     Route: 048
     Dates: start: 20060401, end: 20060411
  4. CORTICOSTEROID NOS [Concomitant]

REACTIONS (2)
  - DRUG INTERACTION [None]
  - HEPATITIS [None]
